FAERS Safety Report 25068128 (Version 2)
Quarter: 2025Q2

REPORT INFORMATION
  Report Type: Spontaneous
  Country: IT (occurrence: IT)
  Receive Date: 20250312
  Receipt Date: 20250604
  Transmission Date: 20250717
  Serious: Yes (Other)
  Sender: ROCHE
  Company Number: IT-ROCHE-10000224914

PATIENT
  Age: 86 Year
  Sex: Female

DRUGS (2)
  1. VABYSMO [Suspect]
     Active Substance: FARICIMAB-SVOA
     Indication: Age-related macular degeneration
     Dosage: RIGHT EYE?DATE OF LAST VABYSMO INJECTION BEFORE AE: 24-FEB-2024
     Route: 050
     Dates: start: 20250127, end: 20250224
  2. VABYSMO [Suspect]
     Active Substance: FARICIMAB-SVOA
     Route: 050
     Dates: start: 20250210, end: 20250210

REACTIONS (2)
  - Endophthalmitis [Recovered/Resolved with Sequelae]
  - Iritis [Recovered/Resolved with Sequelae]

NARRATIVE: CASE EVENT DATE: 20250227
